FAERS Safety Report 17718771 (Version 1)
Quarter: 2020Q2

REPORT INFORMATION
  Report Type: Spontaneous
  Country: US (occurrence: US)
  Receive Date: 20200428
  Receipt Date: 20200428
  Transmission Date: 20200714
  Serious: Yes (Hospitalization, Disabling)
  Sender: FDA-Public Use
  Company Number: US-JNJFOC-20200429599

PATIENT
  Age: 31 Year
  Sex: Male

DRUGS (1)
  1. INVOKANA [Suspect]
     Active Substance: CANAGLIFLOZIN
     Indication: PRODUCT USED FOR UNKNOWN INDICATION
     Route: 048

REACTIONS (8)
  - Abscess limb [Recovering/Resolving]
  - Wound [Recovering/Resolving]
  - Gangrene [Recovering/Resolving]
  - Diabetic foot infection [Recovering/Resolving]
  - Septic shock [Recovered/Resolved]
  - Postoperative wound complication [Recovering/Resolving]
  - Leg amputation [Unknown]
  - Necrotising fasciitis [Recovering/Resolving]

NARRATIVE: CASE EVENT DATE: 2018
